FAERS Safety Report 14958134 (Version 1)
Quarter: 2018Q2

REPORT INFORMATION
  Report Type: Spontaneous
  Country: US (occurrence: US)
  Receive Date: 20180531
  Receipt Date: 20180531
  Transmission Date: 20180711
  Serious: No
  Sender: FDA-Public Use
  Company Number: US-IMPAX LABORATORIES, INC-2017-IPXL-01407

PATIENT
  Age: 86 Year
  Sex: Female
  Weight: 52 kg

DRUGS (4)
  1. APRISO [Concomitant]
     Active Substance: MESALAMINE
     Indication: COLITIS
     Dosage: 0.375 G, UNK
     Route: 065
  2. PROPRANOLOL HYDROCHLORIDE IR [Suspect]
     Active Substance: PROPRANOLOL HYDROCHLORIDE
     Indication: ARRHYTHMIA
     Dosage: 20 MG, 1 DF, 2 /DAY
     Route: 048
     Dates: start: 20170320
  3. ATIVAN [Concomitant]
     Active Substance: LORAZEPAM
     Indication: PRODUCT USED FOR UNKNOWN INDICATION
     Dosage: 0.5 MG, UNK
     Route: 065
  4. PROPAFENONE. [Concomitant]
     Active Substance: PROPAFENONE
     Indication: ARRHYTHMIA
     Dosage: 150 MG, UNK
     Route: 065

REACTIONS (3)
  - Headache [Recovering/Resolving]
  - Dysgeusia [Recovering/Resolving]
  - Nausea [Recovering/Resolving]

NARRATIVE: CASE EVENT DATE: 20170320
